FAERS Safety Report 8831332 (Version 1)
Quarter: 2012Q4

REPORT INFORMATION
  Report Type: 
  Country: ES (occurrence: ES)
  Receive Date: 20121009
  Receipt Date: 20121009
  Transmission Date: 20130627
  Serious: Yes (Other)
  Sender: FDA-Public Use
  Company Number: ES-MYLANLABS-2012S1020011

PATIENT
  Age: 51 Year
  Sex: Male

DRUGS (2)
  1. METHOTREXATE [Suspect]
     Indication: RHEUMATOID ARTHRITIS
     Dosage: 10mg weekly
     Route: 065
  2. LEFLUNOMIDE [Suspect]
     Indication: RHEUMATOID ARTHRITIS
     Dosage: 10mg daily
     Route: 065

REACTIONS (2)
  - Visceral leishmaniasis [Recovering/Resolving]
  - Histiocytosis haematophagic [Recovering/Resolving]
